FAERS Safety Report 5231744-X (Version None)
Quarter: 2007Q1

REPORT INFORMATION
  Report Type: 
  Country: None (occurrence: None)
  Receive Date: 20061201
  Receipt Date: 20060926
  Transmission Date: 20070707
  Serious: No
  Sender: FDA-Public Use
  Company Number: 2006PV022137

PATIENT
  Age: 55 Year
  Sex: Female

DRUGS (8)
  1. BYETTA [Suspect]
     Indication: DRUG USE FOR UNKNOWN INDICATION
     Dosage: 5 MCG;SC
     Route: 058
     Dates: start: 20060801, end: 20060801
  2. LIPITOR [Concomitant]
  3. CELEBREX [Concomitant]
  4. ZETIA [Concomitant]
  5. FORTAMET [Concomitant]
  6. SYNTHROID [Concomitant]
  7. BENICAR [Concomitant]
  8. PREVACID [Concomitant]

REACTIONS (1)
  - WEIGHT INCREASED [None]
